FAERS Safety Report 6724172-9 (Version None)
Quarter: 2010Q2

REPORT INFORMATION
  Report Type: 
  Country: None (occurrence: None)
  Receive Date: 20100513
  Receipt Date: 20100427
  Transmission Date: 20101027
  Serious: Yes (Hospitalization)
  Sender: FDA-Public Use
  Company Number: CA-JNJFOC-20100504146

PATIENT
  Age: 57 Year
  Sex: Female

DRUGS (7)
  1. SODIUM PHOSPHATE [Suspect]
     Indication: BOWEL PREPARATION
     Dosage: FOR 2 CONSECUTIVE NIGHTS
     Route: 048
  2. LISINOPRIL [Concomitant]
     Indication: HYPERTENSION
     Route: 048
  3. HYDROCHLOROTHIAZIDE [Concomitant]
     Indication: HYPERTENSION
     Route: 048
  4. VERAPAMIL [Concomitant]
     Indication: HYPERTENSION
     Route: 048
  5. IBUPROFEN [Concomitant]
     Route: 065
  6. MULTIVITAMINES [Concomitant]
     Route: 065
  7. ETIDRONATE DISODIUM [Concomitant]
     Route: 065

REACTIONS (7)
  - ELECTROCARDIOGRAM T WAVE AMPLITUDE DECREASED [None]
  - HYPERALDOSTERONISM [None]
  - HYPOAESTHESIA [None]
  - HYPOAESTHESIA ORAL [None]
  - HYPOKALAEMIA [None]
  - PARAESTHESIA [None]
  - PARAESTHESIA ORAL [None]
